FAERS Safety Report 6771920-8 (Version None)
Quarter: 2010Q2

REPORT INFORMATION
  Report Type: 
  Country: None (occurrence: None)
  Receive Date: 20100616
  Receipt Date: 20100611
  Transmission Date: 20101027
  Serious: Yes (Other)
  Sender: FDA-Public Use
  Company Number: GB-JNJFOC-20090603456

PATIENT
  Age: 52 Year
  Sex: Male

DRUGS (3)
  1. GRISEOFULVIN ULTRAFINE [Suspect]
     Indication: ONYCHOMYCOSIS
     Route: 065
  2. TOLNAFTATE [Suspect]
     Indication: ONYCHOMYCOSIS
     Route: 061
  3. DAPSONE [Concomitant]
     Indication: DERMATITIS HERPETIFORMIS
     Route: 065

REACTIONS (1)
  - SYSTEMIC LUPUS ERYTHEMATOSUS [None]
